FAERS Safety Report 25777752 (Version 1)
Quarter: 2025Q3

REPORT INFORMATION
  Report Type: Spontaneous
  Country: US (occurrence: US)
  Receive Date: 20250909
  Receipt Date: 20250909
  Transmission Date: 20251021
  Serious: No
  Sender: ABBVIE
  Company Number: US-ABBVIE-6442933

PATIENT
  Age: 80 Year
  Sex: Female
  Weight: 68.038 kg

DRUGS (1)
  1. LINZESS [Suspect]
     Active Substance: LINACLOTIDE
     Indication: Constipation
     Route: 048
     Dates: start: 20250830, end: 20250830

REACTIONS (3)
  - Anal incontinence [Recovered/Resolved]
  - Drug ineffective [Not Recovered/Not Resolved]
  - Diarrhoea [Recovered/Resolved]

NARRATIVE: CASE EVENT DATE: 20250830
